FAERS Safety Report 8552294-9 (Version None)
Quarter: 2012Q3

REPORT INFORMATION
  Report Type: 
  Country: None (occurrence: None)
  Receive Date: 20120723
  Receipt Date: 20120723
  Transmission Date: 20120928
  Serious: Yes (Other)
  Sender: FDA-Public Use
  Company Number: None

PATIENT
  Sex: Male
  Weight: 87.0906 kg

DRUGS (1)
  1. PROPECIA [Suspect]
     Indication: ANDROGENETIC ALOPECIA
     Dosage: 1 MG DAILY PO
     Route: 048
     Dates: start: 20100115, end: 20110315

REACTIONS (13)
  - EMOTIONAL DISORDER [None]
  - SPEECH DISORDER [None]
  - ERECTILE DYSFUNCTION [None]
  - ANXIETY [None]
  - FEELING ABNORMAL [None]
  - BODY FAT DISORDER [None]
  - DEPRESSION [None]
  - INCONTINENCE [None]
  - LIBIDO DECREASED [None]
  - ALOPECIA [None]
  - SUICIDAL IDEATION [None]
  - EXERCISE TOLERANCE DECREASED [None]
  - DISTURBANCE IN ATTENTION [None]
